FAERS Safety Report 21519083 (Version 1)
Quarter: 2022Q4

REPORT INFORMATION
  Report Type: Spontaneous
  Country: US (occurrence: US)
  Receive Date: 20221028
  Receipt Date: 20221028
  Transmission Date: 20230113
  Serious: No
  Sender: FDA-Public Use
  Company Number: ALC2021US007109

PATIENT

DRUGS (4)
  1. INVELTYS [Suspect]
     Active Substance: LOTEPREDNOL ETABONATE
     Indication: Cataract operation
     Dosage: UNK
     Route: 065
  2. BROMSITE [Suspect]
     Active Substance: BROMFENAC SODIUM
     Indication: Cataract operation
     Route: 065
  3. BESIVANCE [Suspect]
     Active Substance: BESIFLOXACIN
     Indication: Cataract operation
     Route: 065
  4. BESIVANCE [Suspect]
     Active Substance: BESIFLOXACIN
     Indication: Cataract operation
     Route: 065

REACTIONS (1)
  - Inflammation [Unknown]
